FAERS Safety Report 4702045-0 (Version None)
Quarter: 2005Q2

REPORT INFORMATION
  Report Type: 
  Country: None (occurrence: None)
  Receive Date: 20050628
  Receipt Date: 20050620
  Transmission Date: 20051028
  Serious: Yes (Death)
  Sender: FDA-Public Use
  Company Number: LB-MERCK-0506USA03178

PATIENT
  Sex: Female

DRUGS (2)
  1. CANCIDAS [Suspect]
     Indication: CANDIDIASIS
     Route: 042
     Dates: start: 20050620, end: 20050622
  2. AMBISOME [Concomitant]
     Route: 065

REACTIONS (3)
  - DEATH [None]
  - DEATH NEONATAL [None]
  - PRESCRIBED OVERDOSE [None]
